FAERS Safety Report 14485946 (Version 1)
Quarter: 2018Q1

REPORT INFORMATION
  Report Type: Spontaneous
  Country: US (occurrence: US)
  Receive Date: 20180203
  Receipt Date: 20180203
  Transmission Date: 20180509
  Serious: No
  Sender: FDA-Public Use
  Company Number: None

PATIENT
  Age: 11 Month
  Sex: Female

DRUGS (1)
  1. VIGABATRIN POWDER 500 MG PAR [Suspect]
     Active Substance: VIGABATRIN
     Indication: EPILEPSY
     Dosage: 500MG 2X DAILY VIA G TUBE-BY MOUTH
     Route: 048
     Dates: start: 20171213

REACTIONS (1)
  - Drug ineffective [None]

NARRATIVE: CASE EVENT DATE: 20180202
